FAERS Safety Report 4438557-7 (Version None)
Quarter: 2004Q3

REPORT INFORMATION
  Report Type: 
  Country: None (occurrence: None)
  Receive Date: 20040728
  Receipt Date: 20040326
  Transmission Date: 20050211
  Serious: No
  Sender: FDA-Public Use
  Company Number: USA040157728

PATIENT
  Age: 10 Year
  Sex: Male
  Weight: 24 kg

DRUGS (2)
  1. STRATTERA [Suspect]
     Indication: ATTENTION DEFICIT/HYPERACTIVITY DISORDER
     Dosage: 40 MG/1 DAY
     Dates: start: 20030101
  2. RITALIN [Concomitant]

REACTIONS (9)
  - DEPRESSED MOOD [None]
  - DISTRACTIBILITY [None]
  - DRUG INEFFECTIVE [None]
  - DYSGRAPHIA [None]
  - EMOTIONAL DISORDER [None]
  - HEADACHE [None]
  - SENSORY INTEGRATIVE DYSFUNCTION [None]
  - SUICIDAL IDEATION [None]
  - SUICIDE ATTEMPT [None]
